FAERS Safety Report 8240744-7 (Version None)
Quarter: 2012Q1

REPORT INFORMATION
  Report Type: 
  Country: None (occurrence: None)
  Receive Date: 20120314
  Receipt Date: 20120124
  Transmission Date: 20120608
  Serious: Yes (Other)
  Sender: FDA-Public Use
  Company Number: PHEH2011US011656

PATIENT
  Age: 26 Year
  Sex: Female

DRUGS (1)
  1. EXTAVIA [Suspect]
     Indication: MULTIPLE SCLEROSIS
     Dosage: 0.25 MG, QOD , SUBCUTANEOUS
     Route: 058
     Dates: start: 20101008

REACTIONS (3)
  - HYPERAESTHESIA [None]
  - NEURALGIA [None]
  - MULTIPLE SCLEROSIS RELAPSE [None]
